FAERS Safety Report 12061616 (Version 2)
Quarter: 2016Q1

REPORT INFORMATION
  Report Type: Other
  Country: AR (occurrence: AR)
  Receive Date: 20160210
  Receipt Date: 20160222
  Transmission Date: 20160526
  Serious: Yes (Other)
  Sender: FDA-Public Use
  Company Number: AR-SHIRE-AR201601444

PATIENT
  Age: 11 Year
  Sex: Male

DRUGS (1)
  1. ELAPRASE [Suspect]
     Active Substance: IDURSULFASE
     Indication: PRODUCT USED FOR UNKNOWN INDICATION
     Dosage: 12 MG (2 VIALS), 1X/WEEK (EVERY 7 DAYS)
     Route: 041

REACTIONS (2)
  - Hydrocephalus [Unknown]
  - Adverse event [Unknown]

NARRATIVE: CASE EVENT DATE: 20160121
